FAERS Safety Report 4688873-9 (Version None)
Quarter: 2005Q2

REPORT INFORMATION
  Report Type: 
  Country: None (occurrence: None)
  Receive Date: 20050603
  Receipt Date: 20050526
  Transmission Date: 20051028
  Serious: Yes (Hospitalization)
  Sender: FDA-Public Use
  Company Number: M2005-011

PATIENT
  Sex: Male

DRUGS (1)
  1. FIRE ANT MIX [Suspect]
     Indication: ARTHROPOD STING
     Dosage: 0.5 ML; INJ    FOR SEVERAL YEARS

REACTIONS (2)
  - ALLERGY TO ARTHROPOD STING [None]
  - REFUSAL OF TREATMENT BY RELATIVE [None]
